FAERS Safety Report 8146152-1 (Version None)
Quarter: 2012Q1

REPORT INFORMATION
  Report Type: 
  Country: None (occurrence: None)
  Receive Date: 20120217
  Receipt Date: 20110404
  Transmission Date: 20120608
  Serious: No
  Sender: FDA-Public Use
  Company Number: US-ABBOTT-11P-163-0716816-00

PATIENT
  Sex: Male
  Weight: 118.04 kg

DRUGS (6)
  1. SIMCOR [Suspect]
     Indication: HIGH DENSITY LIPOPROTEIN DECREASED
     Dosage: 1000/20MG QHS
     Route: 048
     Dates: start: 20100801
  2. SIMCOR [Suspect]
     Dosage: 1000/20MG
     Route: 048
     Dates: start: 20100801, end: 20100801
  3. PLENDIL [Concomitant]
     Indication: PRODUCT USED FOR UNKNOWN INDICATION
  4. ASPIRIN [Concomitant]
     Indication: PRODUCT USED FOR UNKNOWN INDICATION
     Route: 048
     Dates: start: 20100901
  5. ASPIRIN [Concomitant]
  6. AVALIDE [Concomitant]
     Indication: PRODUCT USED FOR UNKNOWN INDICATION

REACTIONS (3)
  - FLUSHING [None]
  - BURNING SENSATION [None]
  - SKIN BURNING SENSATION [None]
